FAERS Safety Report 24417974 (Version 2)
Quarter: 2024Q4

REPORT INFORMATION
  Report Type: Spontaneous
  Country: ES (occurrence: ES)
  Receive Date: 20241009
  Receipt Date: 20241030
  Transmission Date: 20250115
  Serious: Yes (Death, Other)
  Sender: BIOCRYST PHARMACEUTICALS
  Company Number: ES-BIOCRYST PHARMACEUTICALS, INC.-2024BCR01008

PATIENT
  Age: 63 Year
  Sex: Female

DRUGS (3)
  1. ORLADEYO [Suspect]
     Active Substance: BEROTRALSTAT HYDROCHLORIDE
     Indication: Hereditary angioedema
     Dosage: UNK
     Dates: start: 202308, end: 2024
  2. DANAZOL [Concomitant]
     Active Substance: DANAZOL
     Dosage: 100 MG, QWK
  3. HUMAN C1-ESTERASE INHIBITOR [Concomitant]
     Active Substance: HUMAN C1-ESTERASE INHIBITOR
     Dosage: 1000 IU INTERNATIONAL UNIT(S), PRN
     Route: 042

REACTIONS (2)
  - Pancreatitis acute [Fatal]
  - Cholelithiasis [Unknown]

NARRATIVE: CASE EVENT DATE: 20240701
